FAERS Safety Report 9236461 (Version 4)
Quarter: 2014Q2

REPORT INFORMATION
  Report Type: Spontaneous
  Country: US (occurrence: US)
  Receive Date: 20130417
  Receipt Date: 20140522
  Transmission Date: 20141212
  Serious: Yes (Hospitalization, Other)
  Sender: FDA-Public Use
  Company Number: US-009507513-1304USA007690

PATIENT
  Sex: Female
  Weight: 90.7 kg

DRUGS (6)
  1. JANUVIA [Suspect]
     Indication: TYPE 2 DIABETES MELLITUS
     Dosage: 50 MG, QD
     Dates: start: 20081007
  2. BYETTA [Suspect]
     Indication: TYPE 2 DIABETES MELLITUS
     Dosage: 5 MICROGRAM, BID
     Dates: start: 20070731, end: 20070830
  3. BYETTA [Suspect]
     Dosage: 10 MICROGRAM, BID
     Dates: start: 20070906, end: 20090827
  4. PRISTIQ [Concomitant]
     Indication: DEPRESSION
     Dosage: 50 MG, QD
  5. FELODIPINE [Concomitant]
     Indication: HYPERTENSION
     Dosage: 5-10 MG, QD
  6. HYDROCHLOROTHIAZIDE (+) LISINOPRIL [Concomitant]
     Indication: HYPERTENSION
     Dosage: 37.5-25 MG, QD

REACTIONS (31)
  - Pancreatic carcinoma [Unknown]
  - Gastrointestinal tube insertion [Unknown]
  - Pancreatic leak [Unknown]
  - Pancreatectomy [Unknown]
  - Pancreatitis chronic [Not Recovered/Not Resolved]
  - Diabetes mellitus inadequate control [Unknown]
  - Hypokalaemia [Unknown]
  - Haemorrhagic anaemia [Unknown]
  - Surgery [Unknown]
  - Renal failure chronic [Not Recovered/Not Resolved]
  - Large intestine polyp [Unknown]
  - Hepatic cyst [Unknown]
  - Limb operation [Unknown]
  - Faeces discoloured [Unknown]
  - Knee operation [Unknown]
  - Peptic ulcer [Unknown]
  - Hysterectomy [Unknown]
  - Dyspnoea [Unknown]
  - Peripheral swelling [Unknown]
  - Cough [Unknown]
  - Bronchitis [Unknown]
  - Anaemia [Unknown]
  - Anxiety [Unknown]
  - Ovarian cyst [Unknown]
  - Carpal tunnel decompression [Unknown]
  - Back disorder [Unknown]
  - Wheezing [Unknown]
  - Feeling cold [Unknown]
  - Pelvic cyst [Unknown]
  - Constipation [Unknown]
  - Nausea [Not Recovered/Not Resolved]
